FAERS Safety Report 7664996-7 (Version None)
Quarter: 2011Q3

REPORT INFORMATION
  Report Type: 
  Country: None (occurrence: None)
  Receive Date: 20110806
  Receipt Date: 20110102
  Transmission Date: 20111222
  Serious: No
  Sender: FDA-Public Use
  Company Number: US-ABBOTT-11P-163-0694741-00

PATIENT
  Sex: Male
  Weight: 86.26 kg

DRUGS (2)
  1. SIMVASTATIN [Concomitant]
     Indication: PRODUCT USED FOR UNKNOWN INDICATION
  2. NIASPAN [Suspect]
     Indication: HIGH DENSITY LIPOPROTEIN DECREASED
     Dosage: DAILY AT BEDTIME
     Dates: start: 20100101

REACTIONS (2)
  - FLUSHING [None]
  - MYALGIA [None]
